FAERS Safety Report 16124772 (Version 2)
Quarter: 2019Q3

REPORT INFORMATION
  Report Type: Report from Study
  Country: JP (occurrence: JP)
  Receive Date: 20190327
  Receipt Date: 20190926
  Transmission Date: 20191004
  Serious: Yes (Death, Hospitalization)
  Sender: FDA-Public Use
  Company Number: JP-EISAI MEDICAL RESEARCH-EC-2018-049547

PATIENT
  Age: 65 Year
  Sex: Male
  Weight: 60 kg

DRUGS (1)
  1. LENVIMA [Suspect]
     Active Substance: LENVATINIB
     Indication: HEPATOCELLULAR CARCINOMA
     Route: 048
     Dates: start: 20180810, end: 20181109

REACTIONS (2)
  - Malignant neoplasm progression [Fatal]
  - Jaundice cholestatic [Recovering/Resolving]

NARRATIVE: CASE EVENT DATE: 20181102
